FAERS Safety Report 6059156-X (Version None)
Quarter: 2009Q1

REPORT INFORMATION
  Report Type: 
  Country: None (occurrence: None)
  Receive Date: 20090130
  Receipt Date: 20090120
  Transmission Date: 20090719
  Serious: Yes (Other)
  Sender: FDA-Public Use
  Company Number: CN-PFIZER INC-2009160289

PATIENT

DRUGS (3)
  1. CEFOPERAZONE SODIUM, SULBACTAM SODIUM [Suspect]
     Indication: INFECTION
     Dosage: UNK
     Route: 042
     Dates: start: 20070707, end: 20070713
  2. CEFTRIAXONE SODIUM [Concomitant]
     Dates: start: 20070622, end: 20070702
  3. METRONIDAZOLE [Concomitant]
     Dates: start: 20070707, end: 20070701

REACTIONS (1)
  - PLATELET COUNT DECREASED [None]
